FAERS Safety Report 23914923 (Version 1)
Quarter: 2024Q2

REPORT INFORMATION
  Report Type: Spontaneous
  Country: IQ (occurrence: IQ)
  Receive Date: 20240529
  Receipt Date: 20240529
  Transmission Date: 20240716
  Serious: Yes (Other)
  Sender: FDA-Public Use
  Company Number: IQ-MYLANLABS-2024M1047488

PATIENT
  Age: 32 Year
  Sex: Female

DRUGS (3)
  1. PREGABALIN [Suspect]
     Active Substance: PREGABALIN
     Indication: Radiculopathy
     Dosage: 75 MILLIGRAM, QD
     Route: 065
     Dates: start: 20230117, end: 20230201
  2. ETORICOXIB [Suspect]
     Active Substance: ETORICOXIB
     Indication: Radiculopathy
     Dosage: 120 MILLIGRAM, QD
     Route: 065
     Dates: start: 20230117, end: 20230130
  3. METHYLPREDNISOLONE [Concomitant]
     Active Substance: METHYLPREDNISOLONE
     Indication: Radiculopathy
     Dosage: 80 MILLIGRAM, QD (ONCE)
     Route: 030

REACTIONS (5)
  - Influenza like illness [Recovered/Resolved]
  - Mouth ulceration [Recovered/Resolved]
  - Chromaturia [Recovered/Resolved]
  - Dysuria [Recovered/Resolved]
  - Stevens-Johnson syndrome [Recovered/Resolved]

NARRATIVE: CASE EVENT DATE: 20230130
